FAERS Safety Report 15103981 (Version 1)
Quarter: 2018Q2

REPORT INFORMATION
  Report Type: Spontaneous
  Country: US (occurrence: US)
  Receive Date: 20180611
  Receipt Date: 20180611
  Transmission Date: 20180711
  Serious: No
  Sender: FDA-Public Use
  Company Number: None

PATIENT
  Age: 56 Year
  Sex: Male

DRUGS (1)
  1. RIBASPHERE [Suspect]
     Active Substance: RIBAVIRIN
     Dates: start: 20180610, end: 20180611

REACTIONS (3)
  - Photosensitivity reaction [None]
  - Sunburn [None]
  - Stomatitis [None]

NARRATIVE: CASE EVENT DATE: 20180611
